FAERS Safety Report 9251720 (Version 3)
Quarter: 2014Q2

REPORT INFORMATION
  Report Type: Spontaneous
  Country: US (occurrence: US)
  Receive Date: 20130424
  Receipt Date: 20140502
  Transmission Date: 20141212
  Serious: No
  Sender: FDA-Public Use
  Company Number: US-PFIZER INC-2013125214

PATIENT
  Age: 58 Year
  Sex: Female
  Weight: 56.69 kg

DRUGS (4)
  1. NEURONTIN [Suspect]
     Indication: BACK PAIN
     Dosage: 300 MG, 1X/DAY
  2. NEURONTIN [Suspect]
     Indication: MIGRAINE
  3. GABAPENTIN [Suspect]
     Indication: BACK PAIN
     Dosage: UNK
  4. MORPHINE SULFATE [Suspect]
     Indication: BACK PAIN
     Dosage: 30 MG, 1X/DAY

REACTIONS (4)
  - Intentional product misuse [Unknown]
  - Therapeutic response changed [Unknown]
  - Pre-existing condition improved [Unknown]
  - Drug ineffective [Unknown]
